FAERS Safety Report 7888084-X (Version None)
Quarter: 2011Q4

REPORT INFORMATION
  Report Type: 
  Country: None (occurrence: None)
  Receive Date: 20111102
  Receipt Date: 20111102
  Transmission Date: 20120403
  Serious: Yes (Hospitalization)
  Sender: FDA-Public Use
  Company Number: None

PATIENT
  Sex: Female
  Weight: 74 kg

DRUGS (2)
  1. TAXOL [Suspect]
     Dosage: 310 MG
  2. CARBOPLATIN [Suspect]
     Dosage: 370 MG

REACTIONS (6)
  - RASH GENERALISED [None]
  - INFUSION SITE RASH [None]
  - PRURITUS [None]
  - NEURALGIA [None]
  - FEBRILE NEUTROPENIA [None]
  - PERIPHERAL SENSORY NEUROPATHY [None]
